FAERS Safety Report 9720394 (Version 3)
Quarter: 2013Q4

REPORT INFORMATION
  Report Type: Spontaneous
  Country: IT (occurrence: IT)
  Receive Date: 20131129
  Receipt Date: 20131206
  Transmission Date: 20140711
  Serious: Yes (Hospitalization, Other)
  Sender: FDA-Public Use
  Company Number: IT-009507513-1309ITA012511

PATIENT
  Age: 57 Year
  Sex: Male

DRUGS (4)
  1. EZETROL 10 MG COMPRESSE [Suspect]
     Indication: HYPERCHOLESTEROLAEMIA
     Dosage: 10 MG, QD
     Route: 048
     Dates: start: 20130201, end: 20130829
  2. EUCREAS [Suspect]
     Indication: DIABETES MELLITUS
     Dosage: 100MG+1700MG
     Route: 048
     Dates: start: 20130214, end: 20130820
  3. SANDIMMUN [Concomitant]
     Dosage: 100 MG, UNK
  4. CERTICAN [Concomitant]
     Dosage: 0.75 MG, UNK

REACTIONS (4)
  - Pancreatitis acute [Recovered/Resolved]
  - Abdominal pain [Recovered/Resolved]
  - Pulmonary embolism [Unknown]
  - Deep vein thrombosis [Unknown]
